FAERS Safety Report 25838212 (Version 2)
Quarter: 2025Q3

REPORT INFORMATION
  Report Type: Spontaneous
  Country: EU (occurrence: EU)
  Receive Date: 20250923
  Receipt Date: 20250925
  Transmission Date: 20251021
  Serious: No
  Sender: AMGEN
  Company Number: EU-002147023-NVSC2025DE146458

PATIENT
  Sex: Female

DRUGS (2)
  1. AIMOVIG [Suspect]
     Active Substance: ERENUMAB-AOOE
     Indication: Migraine
     Route: 065
     Dates: start: 202312
  2. XARELTO [Concomitant]
     Active Substance: RIVAROXABAN
     Indication: Coagulopathy
     Dosage: 10 MG, QD
     Route: 065

REACTIONS (8)
  - Nasopharyngitis [Not Recovered/Not Resolved]
  - Rhinorrhoea [Not Recovered/Not Resolved]
  - Headache [Not Recovered/Not Resolved]
  - Cough [Not Recovered/Not Resolved]
  - Sputum discoloured [Not Recovered/Not Resolved]
  - Drug ineffective [Unknown]
  - Inappropriate schedule of product administration [Unknown]
  - Product availability issue [Unknown]

NARRATIVE: CASE EVENT DATE: 20240101
